FAERS Safety Report 9663274 (Version 3)
Quarter: 2013Q4

REPORT INFORMATION
  Report Type: Spontaneous
  Country: US (occurrence: US)
  Receive Date: 20131101
  Receipt Date: 20131218
  Transmission Date: 20140711
  Serious: Yes (Hospitalization)
  Sender: FDA-Public Use
  Company Number: US-BIOGENIDEC-2013BI103505

PATIENT
  Age: 43 Year
  Sex: Male

DRUGS (32)
  1. TYSABRI [Suspect]
     Indication: CROHN^S DISEASE
     Route: 042
     Dates: start: 20130418, end: 201310
  2. ASCORBIC ACID [Concomitant]
     Route: 048
  3. ATIVAN [Concomitant]
     Route: 048
  4. BACLOFEN [Concomitant]
     Route: 048
  5. BELLADONNA ALKALOIDS [Concomitant]
     Route: 048
  6. VITAMIN D2 [Concomitant]
     Route: 048
  7. BUPROPION [Concomitant]
     Route: 048
  8. CALCIUM [Concomitant]
     Route: 048
  9. CELEBREX [Concomitant]
     Route: 048
  10. COLESEVELAM [Concomitant]
     Route: 048
  11. DIPHENOXYLATE-ATROPINE [Concomitant]
     Route: 048
  12. ENALAPRIL [Concomitant]
     Route: 048
  13. FERROUS SULFATE [Concomitant]
     Route: 048
  14. FLUTICASONE [Concomitant]
     Route: 045
  15. GABAPENTIN [Concomitant]
     Route: 048
  16. HYOSCYAMINE [Concomitant]
     Route: 048
  17. METFORMIN [Concomitant]
     Route: 048
  18. NORTRIPTYLINE [Concomitant]
     Route: 048
  19. OMEPRAZOLE [Concomitant]
     Route: 048
  20. ONDANSETRON [Concomitant]
     Route: 048
  21. OXYCODONE-ACETAMINOPHEN [Concomitant]
     Route: 048
  22. PHENERGAN [Concomitant]
     Route: 048
  23. PHENOBARB-BELLADONNA ALKALOIDS (DONNATAL) [Concomitant]
     Route: 048
  24. SERTRALINE [Concomitant]
     Route: 048
  25. SIMVASTATIN [Concomitant]
     Route: 048
  26. TESTOSTERONE CYPIONATE [Concomitant]
     Route: 030
  27. TRAMADOL [Concomitant]
     Route: 048
  28. TRILIPIX [Concomitant]
     Route: 048
  29. WARFARIN [Concomitant]
     Route: 048
  30. ENOXAPARIN [Concomitant]
     Route: 058
  31. FISH OIL - OMEGA-3 FATTY ACIDS [Concomitant]
     Route: 048
  32. PREDISONE [Concomitant]
     Route: 048

REACTIONS (3)
  - Drug ineffective [Unknown]
  - Musculoskeletal pain [Recovered/Resolved]
  - Abdominal pain [Not Recovered/Not Resolved]
